FAERS Safety Report 9097724 (Version 1)
Quarter: 2013Q1

REPORT INFORMATION
  Report Type: Spontaneous
  Country: US (occurrence: US)
  Receive Date: 20130212
  Receipt Date: 20130212
  Transmission Date: 20140127
  Serious: Yes (Other)
  Sender: FDA-Public Use
  Company Number: US-UCBSA-077927

PATIENT
  Age: 23 Year
  Sex: Male

DRUGS (2)
  1. ALPRAZOLAM [Suspect]
     Route: 045
  2. METHADONE [Suspect]
     Dosage: UNKNOWN DOSE

REACTIONS (3)
  - Central nervous system necrosis [Unknown]
  - Rhabdomyolysis [Unknown]
  - Incorrect route of drug administration [Unknown]
